FAERS Safety Report 11851731 (Version 2)
Quarter: 2016Q1

REPORT INFORMATION
  Report Type: Spontaneous
  Country: US (occurrence: US)
  Receive Date: 20151218
  Receipt Date: 20160126
  Transmission Date: 20160526
  Serious: Yes (Hospitalization, Disabling)
  Sender: FDA-Public Use
  Company Number: US-009507513-1512USA006029

PATIENT
  Age: 33 Year
  Sex: Female

DRUGS (5)
  1. TYLENOL [Concomitant]
     Active Substance: ACETAMINOPHEN
     Indication: PREMEDICATION
     Dosage: UNK
     Dates: start: 201511
  2. TEMODAR [Suspect]
     Active Substance: TEMOZOLOMIDE
     Dosage: 320 MG OVER 5 DAY PERIOD,
     Route: 048
     Dates: start: 20150615, end: 2015
  3. BENADRYL [Concomitant]
     Active Substance: DIPHENHYDRAMINE HYDROCHLORIDE
     Indication: PREMEDICATION
     Dosage: UNK
     Dates: start: 201511
  4. TEMODAR [Suspect]
     Active Substance: TEMOZOLOMIDE
     Indication: GLIOBLASTOMA
     Dosage: SECOND MAINTENANCE CYCLE
     Route: 048
     Dates: start: 201511, end: 201511
  5. DEXAMETHASONE. [Concomitant]
     Active Substance: DEXAMETHASONE
     Indication: PREMEDICATION
     Dosage: UNK
     Route: 048
     Dates: start: 201511

REACTIONS (5)
  - Myalgia [Not Recovered/Not Resolved]
  - Urticaria [Recovered/Resolved]
  - Pruritus [Recovered/Resolved]
  - Adverse event [Unknown]
  - Rash [Unknown]

NARRATIVE: CASE EVENT DATE: 2015
